FAERS Safety Report 25127509 (Version 3)
Quarter: 2025Q3

REPORT INFORMATION
  Report Type: Report from Study
  Country: JP (occurrence: JP)
  Receive Date: 20250327
  Receipt Date: 20250813
  Transmission Date: 20251021
  Serious: No
  Sender: UCB
  Company Number: JP-UCBJ-CD202503861UCBPHAPROD

PATIENT
  Sex: Male
  Weight: 66 kg

DRUGS (17)
  1. FENFLURAMINE HYDROCHLORIDE [Suspect]
     Active Substance: FENFLURAMINE HYDROCHLORIDE
     Indication: Severe myoclonic epilepsy of infancy
     Dosage: 0.1 MILLIGRAM/KILOGRAM, 2X/DAY (BID)
     Route: 048
     Dates: start: 20230425, end: 20230601
  2. FENFLURAMINE HYDROCHLORIDE [Suspect]
     Active Substance: FENFLURAMINE HYDROCHLORIDE
     Dosage: 0.25 MILLIGRAM/KILOGRAM, 2X/DAY (BID)
     Route: 048
     Dates: start: 20230602, end: 20230615
  3. FENFLURAMINE HYDROCHLORIDE [Suspect]
     Active Substance: FENFLURAMINE HYDROCHLORIDE
     Dosage: 0.1 MILLIGRAM/KILOGRAM, 2X/DAY (BID)
     Route: 048
     Dates: start: 20230616, end: 20231009
  4. FENFLURAMINE HYDROCHLORIDE [Suspect]
     Active Substance: FENFLURAMINE HYDROCHLORIDE
     Dosage: 0.09 MILLIGRAM/KILOGRAM, 2X/DAY (BID)
     Route: 048
     Dates: start: 20231010, end: 20231023
  5. FENFLURAMINE HYDROCHLORIDE [Suspect]
     Active Substance: FENFLURAMINE HYDROCHLORIDE
     Dosage: 0.07 MILLIGRAM/KILOGRAM, 2X/DAY (BID)
     Route: 048
     Dates: start: 20231024, end: 20231109
  6. FENFLURAMINE HYDROCHLORIDE [Suspect]
     Active Substance: FENFLURAMINE HYDROCHLORIDE
     Dosage: 0.05 MILLIGRAM/KILOGRAM, 2X/DAY (BID)
     Route: 048
     Dates: start: 20231110, end: 20231205
  7. FENFLURAMINE HYDROCHLORIDE [Suspect]
     Active Substance: FENFLURAMINE HYDROCHLORIDE
     Dosage: 0.07 MILLIGRAM/KILOGRAM, 2X/DAY (BID)
     Route: 048
     Dates: start: 20231206, end: 20240108
  8. FENFLURAMINE HYDROCHLORIDE [Suspect]
     Active Substance: FENFLURAMINE HYDROCHLORIDE
     Dosage: 0.06 MILLIGRAM/KILOGRAM, 2X/DAY (BID)
     Route: 048
     Dates: start: 20240109, end: 20240201
  9. FENFLURAMINE HYDROCHLORIDE [Suspect]
     Active Substance: FENFLURAMINE HYDROCHLORIDE
     Dosage: 0.05 MILLIGRAM/KILOGRAM, 2X/DAY (BID)
     Route: 048
     Dates: start: 20240202, end: 20240229
  10. FENFLURAMINE HYDROCHLORIDE [Suspect]
     Active Substance: FENFLURAMINE HYDROCHLORIDE
     Dosage: 0.03 MILLIGRAM/KILOGRAM, 2X/DAY (BID)
     Route: 048
     Dates: start: 20240301, end: 20240328
  11. FENFLURAMINE HYDROCHLORIDE [Suspect]
     Active Substance: FENFLURAMINE HYDROCHLORIDE
     Dosage: 0.15 MILLIGRAM/KILOGRAM, 2X/DAY (BID)
     Route: 048
     Dates: start: 20240329
  12. VALPROATE SODIUM [Suspect]
     Active Substance: VALPROATE SODIUM
     Indication: Severe myoclonic epilepsy of infancy
     Dosage: 800 MILLIGRAM, ONCE DAILY (QD)
     Route: 048
  13. DIACOMIT [Suspect]
     Active Substance: STIRIPENTOL
     Indication: Severe myoclonic epilepsy of infancy
     Dosage: 2000 MILLIGRAM, ONCE DAILY (QD)
     Route: 048
  14. LEVETIRACETAM [Concomitant]
     Active Substance: LEVETIRACETAM
     Indication: Severe myoclonic epilepsy of infancy
     Route: 048
  15. ZONISAMIDE [Concomitant]
     Active Substance: ZONISAMIDE
     Indication: Severe myoclonic epilepsy of infancy
     Route: 048
  16. MYSTAN [Concomitant]
     Active Substance: CLOBAZAM
     Indication: Severe myoclonic epilepsy of infancy
     Route: 048
  17. BILANOA OD [Concomitant]
     Indication: Product used for unknown indication
     Route: 048

REACTIONS (4)
  - Asthenia [Recovered/Resolved]
  - Tremor [Recovered/Resolved]
  - Prescribed underdose [Unknown]
  - Off label use [Unknown]

NARRATIVE: CASE EVENT DATE: 20230427
